FAERS Safety Report 7435011-5 (Version None)
Quarter: 2011Q2

REPORT INFORMATION
  Report Type: 
  Country: None (occurrence: None)
  Receive Date: 20110418
  Receipt Date: 20110408
  Transmission Date: 20111010
  Serious: Yes (Death, Hospitalization)
  Sender: FDA-Public Use
  Company Number: 115512

PATIENT
  Age: 10 Year
  Sex: Female

DRUGS (1)
  1. THIOTEPA [Suspect]
     Indication: CHEMOTHERAPY
     Dosage: 250 MG/M2/DAY

REACTIONS (12)
  - APNOEA [None]
  - LYMPHOPENIA [None]
  - HAEMODIALYSIS [None]
  - THROMBOCYTOPENIA [None]
  - NEUTROPENIA [None]
  - THROMBOTIC MICROANGIOPATHY [None]
  - GENERAL PHYSICAL HEALTH DETERIORATION [None]
  - POLYOMAVIRUS-ASSOCIATED NEPHROPATHY [None]
  - CONVULSION [None]
  - HYPOGAMMAGLOBULINAEMIA [None]
  - DISEASE COMPLICATION [None]
  - STEM CELL TRANSPLANT [None]
